FAERS Safety Report 7218642-7 (Version None)
Quarter: 2011Q1

REPORT INFORMATION
  Report Type: 
  Country: None (occurrence: None)
  Receive Date: 20110110
  Receipt Date: 20101214
  Transmission Date: 20110831
  Serious: Yes (Hospitalization)
  Sender: FDA-Public Use
  Company Number: US-ASTRAZENECA-2010SE51363

PATIENT
  Age: 20 Year
  Sex: Female

DRUGS (2)
  1. NEXIUM [Suspect]
     Route: 048
  2. CYMBALTA [Concomitant]

REACTIONS (5)
  - NAUSEA [None]
  - DEHYDRATION [None]
  - VOMITING [None]
  - BLOOD GASTRIN INCREASED [None]
  - EJECTION FRACTION ABNORMAL [None]
